FAERS Safety Report 13974109 (Version 1)
Quarter: 2017Q3

REPORT INFORMATION
  Report Type: Not Available
  Country: GB (occurrence: GB)
  Receive Date: 20170915
  Receipt Date: 20170915
  Transmission Date: 20171128
  Serious: Yes (Other)
  Sender: FDA-Public Use
  Company Number: GB-SYNTHON BV-NL01PV17_44769

PATIENT
  Age: 59 Year
  Sex: Male
  Weight: 83 kg

DRUGS (30)
  1. AMOXICILLIN. [Concomitant]
     Active Substance: AMOXICILLIN
     Dosage: 1 DF, TID
     Dates: start: 20170713, end: 20170720
  2. FLUCLOXACILLIN [Concomitant]
     Active Substance: FLUCLOXACILLIN
     Dosage: 1 DF, QID
     Dates: start: 20170814, end: 20170821
  3. METRONIDAZOLE. [Concomitant]
     Active Substance: METRONIDAZOLE
     Dosage: 1 DF, FOR FOUR WEEKS
     Dates: start: 20170411
  4. NASEPTIN [Concomitant]
     Active Substance: CHLORHEXIDINE HYDROCHLORIDE\NEOMYCIN SULFATE
     Dosage: 1 DF, TID,  FOR ONE MONTH
     Dates: start: 20170814
  5. PHENOXYMETHYLPENICILLIN [Concomitant]
     Active Substance: PENICILLIN V
     Dosage: 1 DF, QID
     Dates: start: 20170411
  6. PREGABALIN. [Concomitant]
     Active Substance: PREGABALIN
     Dosage: 1 DF, BID
     Dates: start: 20170411
  7. VITAMINS NOS [Concomitant]
     Active Substance: VITAMINS
     Dosage: 1 DF, QD
     Dates: start: 20170411
  8. ATORVASTATIN [Concomitant]
     Active Substance: ATORVASTATIN
     Dosage: 1 DF, QD, AT NIGHT.
     Dates: start: 20170411
  9. LANSOPRAZOLE. [Concomitant]
     Active Substance: LANSOPRAZOLE
     Dosage: 1 DF, QD
     Dates: start: 20170411
  10. LOPERAMIDE [Concomitant]
     Active Substance: LOPERAMIDE
     Dosage: UNK, USE AS DIRECTED.
     Dates: start: 20170411
  11. TRAMADOL. [Concomitant]
     Active Substance: TRAMADOL
     Dosage: 2 DF, PRN, FOUR TIMES DAILY.
     Dates: start: 20170320
  12. FLUCONAZOLE. [Concomitant]
     Active Substance: FLUCONAZOLE
     Dosage: 1 DF, AS DIRECTED.
     Dates: start: 20170809, end: 20170813
  13. FOSTAIR [Concomitant]
     Active Substance: BECLOMETHASONE\FORMOTEROL
     Dosage: 276 DF, BID
     Dates: start: 20170411
  14. TAMSULOSIN [Suspect]
     Active Substance: TAMSULOSIN
     Dosage: UNK
     Dates: start: 20170809
  15. CIALIS [Concomitant]
     Active Substance: TADALAFIL
     Dosage: UNK, TAKE AT LEAST 30 MINUTES BEFORE SEXUAL ACTIVITY...
     Dates: start: 20170411
  16. LIRAGLUTIDE [Concomitant]
     Active Substance: LIRAGLUTIDE
     Dosage: 1 DF, QD, AS ADVISED BY SPECIALIST.
     Dates: start: 20170411
  17. PARACETAMOL [Concomitant]
     Active Substance: ACETAMINOPHEN
     Dosage: 2 DF, PRN, FOUR TIMES A DAY.
     Dates: start: 20170411
  18. LANTUS [Concomitant]
     Active Substance: INSULIN GLARGINE
     Dosage: UNK, 34 UNITS AT NIGHT OR 36 UNITS IF EATING CURRY O...
     Dates: start: 20170411
  19. SENNA                              /00142201/ [Concomitant]
     Active Substance: SENNA LEAF
     Dosage: 10 ML, PRN, AT NIGHT.
     Dates: start: 20170411
  20. ASPIRIN                            /00002701/ [Concomitant]
     Active Substance: ASPIRIN
     Dosage: 1 DF, QD
     Dates: start: 20170411
  21. CHLORHEXIDINE GLUCONATE. [Concomitant]
     Active Substance: CHLORHEXIDINE GLUCONATE
     Dosage: UNK, USE AS DIRECTED.
     Dates: start: 20170809
  22. DAPAGLIFLOZIN. [Concomitant]
     Active Substance: DAPAGLIFLOZIN
     Dosage: 1 DF, QD
     Dates: start: 20170411
  23. SALBUTAMOL [Concomitant]
     Active Substance: ALBUTEROL
     Dosage: 2 DF, QID
     Dates: start: 20170411
  24. DERMOL                             /01330701/ [Concomitant]
     Dosage: UNK, USE AS DIRECTED.
     Dates: start: 20170809
  25. FUSIDIC ACID [Concomitant]
     Active Substance: FUSIDIC ACID
     Dosage: 1 DF, 3-4 TIMES/DAY AS DIRECTED.
     Dates: start: 20170809
  26. GLICLAZIDE [Concomitant]
     Active Substance: GLICLAZIDE
     Dosage: 3 DF, DAILY, ONE IN THE MORNING, TWO IN THE EVENING.
     Dates: start: 20170411
  27. LISINOPRIL. [Concomitant]
     Active Substance: LISINOPRIL
     Dosage: 1 DF, QD
     Dates: start: 20170411
  28. SERTRALINE [Concomitant]
     Active Substance: SERTRALINE HYDROCHLORIDE
     Dosage: 1 DF, QD
     Dates: start: 20170411
  29. VITAMIN B [Concomitant]
     Active Substance: VITAMIN B
     Dosage: 1 DF, QD
     Dates: start: 20170411
  30. ZOPICLONE [Concomitant]
     Active Substance: ZOPICLONE
     Dosage: 1 DF, PRN, AT NIGHT FOR SHORT TERM ...
     Dates: start: 20170612, end: 20170619

REACTIONS (2)
  - Diarrhoea [Recovered/Resolved]
  - Hypoglycaemia [Recovered/Resolved]

NARRATIVE: CASE EVENT DATE: 20170814
